FAERS Safety Report 11583305 (Version 2)
Quarter: 2015Q4

REPORT INFORMATION
  Report Type: Report from Study
  Country: US (occurrence: US)
  Receive Date: 20151001
  Receipt Date: 20151106
  Transmission Date: 20160304
  Serious: Yes (Hospitalization, Other)
  Sender: FDA-Public Use
  Company Number: US-009507513-1509USA014180

PATIENT
  Age: 17 Year
  Sex: Male
  Weight: 62 kg

DRUGS (12)
  1. CRIZOTINIB [Suspect]
     Active Substance: CRIZOTINIB
     Indication: ANAPLASTIC LARGE CELL LYMPHOMA T- AND NULL-CELL TYPES
     Dosage: COURSE A, B: 165 MG/M2, CYCLICAL (TWICE DAILY ON DAYS 1-21)
     Route: 048
  2. VP-16 [Suspect]
     Active Substance: ETOPOSIDE
     Indication: ANAPLASTIC LARGE CELL LYMPHOMA T- AND NULL-CELL TYPES
     Dosage: COURSE A: 100 MG/M2, CYCLICAL OVER 2 HOURS ON DAYS 4 AND 5
     Route: 042
  3. DEXAMETHASONE. [Suspect]
     Active Substance: DEXAMETHASONE
     Dosage: PROPHASE: 5MG/M2 (ONCE DAILY ON DAYS 1-2, AND TWICE DAILY ON DAYS 3-5)
  4. METHOTREXATE [Suspect]
     Active Substance: METHOTREXATE
     Indication: ANAPLASTIC LARGE CELL LYMPHOMA T- AND NULL-CELL TYPES
     Dosage: PROPHASE: 7.5-12 MG ON DAY 1
     Route: 037
  5. METHOTREXATE [Suspect]
     Active Substance: METHOTREXATE
     Dosage: COURSE A,B: 3000 MG/M2, CYCLICAL OVER 3 HOURS ON DAY 1
     Route: 042
  6. CYTARABINE. [Suspect]
     Active Substance: CYTARABINE
     Dosage: PROPHASE: 15-24 GM ON DAY 1 (AGE BASED DOSING)
     Route: 037
  7. NEULASTA [Suspect]
     Active Substance: PEGFILGRASTIM
  8. CYCLOPHOSPHAMIDE. [Suspect]
     Active Substance: CYCLOPHOSPHAMIDE
     Dosage: UNK
  9. IFOSFAMIDE. [Suspect]
     Active Substance: IFOSFAMIDE
     Indication: ANAPLASTIC LARGE CELL LYMPHOMA T- AND NULL-CELL TYPES
     Dosage: COURSE A: 800 MG/M2, CYCLICAL OVER 60 MIN ON DAYS 1-5
     Route: 042
  10. DOXORUBICIN HYDROCHLORIDE. [Suspect]
     Active Substance: DOXORUBICIN HYDROCHLORIDE
     Dosage: UNK
  11. CYTARABINE. [Suspect]
     Active Substance: CYTARABINE
     Indication: ANAPLASTIC LARGE CELL LYMPHOMA T- AND NULL-CELL TYPES
     Dosage: COURSE A: 150 MG/M2, CYCLICAL OVER 1-30 MINUTES EVERY 12 HOURS ON DAYS 4 AND 5
     Route: 042
  12. DEXAMETHASONE. [Suspect]
     Active Substance: DEXAMETHASONE
     Indication: ANAPLASTIC LARGE CELL LYMPHOMA T- AND NULL-CELL TYPES
     Dosage: COURSE A, B: 5 MG/M2, CYCLICAL TWICE DAILY ON DAYS 1-5.
     Route: 048

REACTIONS (2)
  - Back pain [Recovered/Resolved]
  - Hypertension [Recovered/Resolved]

NARRATIVE: CASE EVENT DATE: 20141016
